FAERS Safety Report 8417828-3 (Version None)
Quarter: 2012Q2

REPORT INFORMATION
  Report Type: 
  Country: None (occurrence: None)
  Receive Date: 20120607
  Receipt Date: 20120601
  Transmission Date: 20120825
  Serious: Yes (Other)
  Sender: FDA-Public Use
  Company Number: US-PFIZER INC-2012133262

PATIENT
  Sex: Female

DRUGS (2)
  1. LYRICA [Suspect]
     Dosage: 150 MG, 2X/DAY
     Route: 048
  2. LYRICA [Suspect]
     Dosage: 150 MG, 1X/DAY
     Route: 048

REACTIONS (7)
  - FEELING ABNORMAL [None]
  - SCAR [None]
  - WEIGHT INCREASED [None]
  - INSOMNIA [None]
  - DEPRESSION [None]
  - HEADACHE [None]
  - ACNE [None]
